FAERS Safety Report 5469188-8 (Version None)
Quarter: 2007Q3

REPORT INFORMATION
  Report Type: 
  Country: None (occurrence: None)
  Receive Date: 20070926
  Receipt Date: 20070926
  Transmission Date: 20080115
  Serious: Yes (Other)
  Sender: FDA-Public Use
  Company Number: None

PATIENT
  Age: 41 Year
  Sex: Female

DRUGS (2)
  1. KEFLEX [Suspect]
     Dates: start: 20051110, end: 20051120
  2. OMNICEF [Concomitant]

REACTIONS (8)
  - BILIARY TRACT DISORDER [None]
  - HEPATIC FIBROSIS [None]
  - HEPATIC STEATOSIS [None]
  - HEPATITIS [None]
  - LIVER DISORDER [None]
  - LYMPHOCYTIC INFILTRATION [None]
  - MYOPATHY [None]
  - PERIPHERAL ISCHAEMIA [None]
